FAERS Safety Report 17905234 (Version 1)
Quarter: 2020Q2

REPORT INFORMATION
  Report Type: Spontaneous
  Country: US (occurrence: US)
  Receive Date: 20200616
  Receipt Date: 20200616
  Transmission Date: 20200714
  Serious: Yes (Hospitalization)
  Sender: FDA-Public Use
  Company Number: None

PATIENT
  Age: 78 Year
  Sex: Male

DRUGS (8)
  1. CALCIUM/MAGNESIUM/ZINC [Concomitant]
  2. FISH OIL [Concomitant]
     Active Substance: FISH OIL
  3. QC GLUCOSAMINE AND CHONDROI [Concomitant]
  4. NINLARO [Suspect]
     Active Substance: IXAZOMIB CITRATE
     Indication: PLASMA CELL MYELOMA
     Route: 048
     Dates: start: 20200215
  5. ACYCLOVIR. [Concomitant]
     Active Substance: ACYCLOVIR
  6. ELIQUIS [Concomitant]
     Active Substance: APIXABAN
  7. ARNUITY ELLIPTA [Concomitant]
     Active Substance: FLUTICASONE FUROATE
  8. COMBIVENT RESPIMAT [Concomitant]
     Active Substance: ALBUTEROL SULFATE\IPRATROPIUM BROMIDE

REACTIONS (1)
  - Cardiac disorder [None]
